FAERS Safety Report 6461895-3 (Version None)
Quarter: 2009Q4

REPORT INFORMATION
  Report Type: 
  Country: None (occurrence: None)
  Receive Date: 20091130
  Receipt Date: 20091124
  Transmission Date: 20100525
  Serious: Yes (Death, Other)
  Sender: FDA-Public Use
  Company Number: PHHY2009JP51850

PATIENT
  Sex: Male

DRUGS (10)
  1. DIOVAN T30230+TAB+HY [Suspect]
     Dosage: 80 MG, QD
     Route: 048
     Dates: start: 20071220
  2. ZYRTEC [Concomitant]
     Dosage: 10 MG, UNK
     Route: 048
     Dates: start: 20071214
  3. LANSOPRAZOLE [Concomitant]
     Dosage: 30 MG, UNK
     Route: 048
     Dates: start: 20071214
  4. BERIZYM [Concomitant]
     Dosage: 3 G, UNK
     Route: 048
     Dates: start: 20071214
  5. LAC B [Concomitant]
     Dosage: 3 G, UNK
     Route: 048
     Dates: start: 20071214
  6. FLUTIDE DISKUS [Concomitant]
     Dosage: 200 UG, UNK
     Route: 048
     Dates: start: 20071214
  7. MEPTIN [Concomitant]
     Dosage: UNK
     Dates: start: 20071214
  8. THEOLONG [Concomitant]
     Dosage: 400 MG, UNK
     Route: 048
     Dates: start: 20080201, end: 20080206
  9. AMOBAN [Concomitant]
     Dosage: 7.5 MG, UNK
     Route: 048
     Dates: start: 20080701
  10. EVIPROSTAT [Concomitant]
     Dosage: 3 DF, UNK
     Route: 048
     Dates: start: 20090225

REACTIONS (4)
  - DEATH [None]
  - HYPOGLYCAEMIA [None]
  - INSOMNIA [None]
  - NOCTURIA [None]
